FAERS Safety Report 18659084 (Version 8)
Quarter: 2023Q2

REPORT INFORMATION
  Report Type: Report from Study
  Country: US (occurrence: US)
  Receive Date: 20201224
  Receipt Date: 20230526
  Transmission Date: 20230721
  Serious: Yes (Other)
  Sender: FDA-Public Use
  Company Number: US-TAKEDA-2020TUS059668

PATIENT
  Age: 77 Year
  Sex: Female
  Weight: 54.789 kg

DRUGS (2)
  1. BRIGATINIB [Suspect]
     Active Substance: BRIGATINIB
     Indication: Metastasis
     Dosage: 120 MILLIGRAM, QD
     Route: 048
     Dates: start: 202011
  2. BRIGATINIB [Suspect]
     Active Substance: BRIGATINIB
     Indication: Lung neoplasm malignant
     Dosage: 90 MILLIGRAM, QD
     Route: 048
     Dates: start: 20210616

REACTIONS (23)
  - Near death experience [Unknown]
  - Bradycardia [Unknown]
  - Hyperchlorhydria [Unknown]
  - Ocular hyperaemia [Unknown]
  - Superficial injury of eye [Unknown]
  - Infection [Unknown]
  - Bone disorder [Unknown]
  - Nasal congestion [Unknown]
  - Amnesia [Unknown]
  - Asthma [Unknown]
  - Influenza [Unknown]
  - Drug hypersensitivity [Unknown]
  - Urinary tract infection [Unknown]
  - Memory impairment [Unknown]
  - Fatigue [Unknown]
  - Weight decreased [Unknown]
  - Blood sodium decreased [Unknown]
  - Dizziness [Unknown]
  - Constipation [Unknown]
  - Headache [Unknown]
  - Dyspnoea [Unknown]
  - Blood pressure increased [Unknown]
  - Product dose omission issue [Unknown]

NARRATIVE: CASE EVENT DATE: 20201214
